FAERS Safety Report 7991206-3 (Version None)
Quarter: 2011Q4

REPORT INFORMATION
  Report Type: 
  Country: None (occurrence: None)
  Receive Date: 20111219
  Receipt Date: 20111215
  Transmission Date: 20120403
  Serious: Yes (Other)
  Sender: FDA-Public Use
  Company Number: US-GLAXOSMITHKLINE-A0915064A

PATIENT
  Age: 55 Year
  Sex: Female

DRUGS (9)
  1. ADVAIR DISKUS 100/50 [Suspect]
     Indication: ASTHMA
     Dosage: 1PUFF TWICE PER DAY
     Route: 055
     Dates: start: 20110211
  2. ALBUTEROL [Concomitant]
  3. THEOPHYLLINE [Concomitant]
  4. CELEXA [Concomitant]
  5. ATROVENT [Concomitant]
  6. LEVOTHYROXINE SODIUM [Concomitant]
  7. VENTOLIN [Suspect]
     Indication: ASTHMA
     Dosage: 2PUFF FOUR TIMES PER DAY
     Dates: start: 20090101
  8. PROAIR HFA [Concomitant]
  9. PREDNISONE TAB [Concomitant]

REACTIONS (5)
  - COUGH [None]
  - ASTHMA [None]
  - DRUG INEFFECTIVE [None]
  - UNDERDOSE [None]
  - PRODUCT QUALITY ISSUE [None]
